FAERS Safety Report 24621127 (Version 1)
Quarter: 2024Q4

REPORT INFORMATION
  Report Type: Report from Study
  Country: CN (occurrence: CN)
  Receive Date: 20241114
  Receipt Date: 20241114
  Transmission Date: 20250115
  Serious: Yes (Death, Life-Threatening, Hospitalization, Disabling, Other)
  Sender: JOHNSON AND JOHNSON
  Company Number: CN-JNJFOC-20241124238

PATIENT

DRUGS (9)
  1. BOSENTAN [Suspect]
     Active Substance: BOSENTAN
     Indication: Product used for unknown indication
     Route: 065
  2. OPSUMIT [Suspect]
     Active Substance: MACITENTAN
     Indication: Product used for unknown indication
     Route: 048
  3. AMBRISENTAN [Suspect]
     Active Substance: AMBRISENTAN
     Indication: Product used for unknown indication
     Route: 065
  4. SILDENAFIL [Concomitant]
     Active Substance: SILDENAFIL
  5. TADALAFIL [Concomitant]
     Active Substance: TADALAFIL
  6. TREPROSTINIL [Concomitant]
     Active Substance: TREPROSTINIL
  7. ILOPROST [Concomitant]
     Active Substance: ILOPROST
  8. SELEXIPAG [Concomitant]
     Active Substance: SELEXIPAG
  9. RIOCIGUAT [Concomitant]
     Active Substance: RIOCIGUAT

REACTIONS (66)
  - Adverse event [Fatal]
  - Adverse event [Unknown]
  - Adverse event [Unknown]
  - Adverse event [Unknown]
  - Adverse event [Unknown]
  - Neutropenia [Unknown]
  - Hepatic cirrhosis [Unknown]
  - Leukopenia [Unknown]
  - Thrombocytopenia [Unknown]
  - Autoimmune hepatitis [Unknown]
  - Pulmonary oedema [Unknown]
  - Angioedema [Unknown]
  - Liver injury [Unknown]
  - Hepatic failure [Unknown]
  - Congestive hepatopathy [Unknown]
  - Hypokalaemia [Unknown]
  - Haematocrit decreased [Unknown]
  - Erythema [Unknown]
  - Gastrooesophageal reflux disease [Unknown]
  - Diarrhoea [Unknown]
  - Nasal obstruction [Unknown]
  - Visual impairment [Unknown]
  - Vomiting [Unknown]
  - Dyspnoea [Unknown]
  - Vertigo [Unknown]
  - Constipation [Unknown]
  - Abdominal pain [Unknown]
  - Sinusitis [Unknown]
  - Nasal congestion [Unknown]
  - Palpitations [Unknown]
  - Urinary tract infection [Unknown]
  - Bronchitis [Unknown]
  - Influenza [Unknown]
  - Haemoglobin decreased [Unknown]
  - Sperm concentration decreased [Unknown]
  - Hypotension [Unknown]
  - Oedema peripheral [Unknown]
  - Transaminases increased [Unknown]
  - Fatigue [Unknown]
  - Fluid retention [Unknown]
  - Flushing [Unknown]
  - Hypersensitivity [Unknown]
  - Headache [Unknown]
  - Nasopharyngitis [Unknown]
  - Anaemia [Unknown]
  - Oedema [Unknown]
  - Liver function test abnormal [Unknown]
  - Blood alkaline phosphatase increased [Unknown]
  - Liver function test increased [Unknown]
  - Liver disorder [Unknown]
  - Haemoptysis [Unknown]
  - Alanine aminotransferase increased [Unknown]
  - Hepatic enzyme increased [Unknown]
  - Aspartate aminotransferase increased [Unknown]
  - Generalised oedema [Unknown]
  - Off label use [Unknown]
  - Pain in jaw [Unknown]
  - Blood bilirubin increased [Unknown]
  - Blood potassium decreased [Unknown]
  - Sinus congestion [Unknown]
  - Iron deficiency anaemia [Unknown]
  - Atrial tachycardia [Unknown]
  - Platelet count decreased [Unknown]
  - Hepatic function abnormal [Unknown]
  - Epistaxis [Unknown]
  - Blood pressure decreased [Unknown]
